FAERS Safety Report 5129396-2 (Version None)
Quarter: 2006Q4

REPORT INFORMATION
  Report Type: 
  Country: None (occurrence: None)
  Receive Date: 20061012
  Receipt Date: 20061004
  Transmission Date: 20070319
  Serious: Yes (Death, Hospitalization)
  Sender: FDA-Public Use
  Company Number: 2006-02491

PATIENT
  Age: 87 Year
  Sex: Male

DRUGS (2)
  1. VELCADE [Suspect]
     Indication: MYELODYSPLASTIC SYNDROME
     Dosage: 1.50 MG/M2, INTRAVENOUS
     Route: 042
     Dates: start: 20060912, end: 20060922
  2. ARACYTINE (CYTARABINE) INJECTION, 10 OR 20MG/M2 [Suspect]
     Indication: MYELODYSPLASTIC SYNDROME
     Dosage: 10.00 MG/M2, SUBCUTANEOUS
     Route: 058
     Dates: start: 20060912, end: 20060922

REACTIONS (5)
  - ACUTE ABDOMEN [None]
  - BODY TEMPERATURE INCREASED [None]
  - FAECALOMA [None]
  - SEPTIC SHOCK [None]
  - URINARY RETENTION [None]
